FAERS Safety Report 5875442-8 (Version None)
Quarter: 2008Q3

REPORT INFORMATION
  Report Type: 
  Country: None (occurrence: None)
  Receive Date: 20080909
  Receipt Date: 20080807
  Transmission Date: 20090109
  Serious: No
  Sender: FDA-Public Use
  Company Number: US-BAYER-200832226NA

PATIENT
  Age: 28 Year
  Sex: Male
  Weight: 73 kg

DRUGS (3)
  1. ULTRAVIST 300 [Suspect]
     Indication: COMPUTERISED TOMOGRAM ABDOMEN
     Dosage: TOTAL DAILY DOSE: 100 ML  UNIT DOSE: 100 ML
     Route: 042
     Dates: start: 20080807, end: 20080807
  2. OMNIPAQUE 240 [Concomitant]
     Indication: COMPUTERISED TOMOGRAM
     Dosage: TOTAL DAILY DOSE: 30 ML
     Route: 048
     Dates: start: 20080806, end: 20080806
  3. OMNIPAQUE 240 [Concomitant]
     Route: 048
     Dates: start: 20080807, end: 20080807

REACTIONS (3)
  - LACRIMATION INCREASED [None]
  - NASAL CONGESTION [None]
  - SNEEZING [None]
